FAERS Safety Report 4980893-X (Version None)
Quarter: 2006Q2

REPORT INFORMATION
  Report Type: 
  Country: None (occurrence: None)
  Receive Date: 20060418
  Receipt Date: 20060405
  Transmission Date: 20061013
  Serious: Yes (Hospitalization, Other)
  Sender: FDA-Public Use
  Company Number: 2006031814

PATIENT
  Age: 48 Year
  Sex: Male
  Weight: 60.3284 kg

DRUGS (11)
  1. NEURONTIN [Suspect]
     Indication: DEPRESSION
     Dosage: ORAL
     Route: 048
  2. TYLENOL PM (DIPHENHYDRAMINE, PARACETAMOL) [Suspect]
     Indication: ILL-DEFINED DISORDER
     Dosage: ORAL
     Route: 048
  3. LORTAB [Suspect]
     Indication: ILL-DEFINED DISORDER
     Dosage: UNKNOWN
     Route: 065
  4. ALL OTHER THERAPEUTIC PRODUCTS (ALL OTHER THERAPEUTIC PRODUCTS) [Suspect]
     Indication: ILL-DEFINED DISORDER
     Dosage: UNKNOWN
     Route: 065
  5. KLONOPIN [Concomitant]
  6. SERZONE [Concomitant]
  7. CLONOPIN (CLONAZEPAM) [Concomitant]
  8. VIAGRA [Concomitant]
  9. AMBIEN [Concomitant]
  10. TRAZODONE HCL [Concomitant]
  11. PAXIL [Concomitant]

REACTIONS (13)
  - ABDOMINAL PAIN UPPER [None]
  - HEPATOTOXICITY [None]
  - HYPERTENSION [None]
  - INJURY ASPHYXIATION [None]
  - INTENTIONAL SELF-INJURY [None]
  - MULTIPLE DRUG OVERDOSE INTENTIONAL [None]
  - NAUSEA [None]
  - NERVE INJURY [None]
  - PARAESTHESIA [None]
  - SKIN LACERATION [None]
  - SUICIDAL IDEATION [None]
  - SUICIDE ATTEMPT [None]
  - VOMITING [None]
